FAERS Safety Report 7330819-9 (Version None)
Quarter: 2011Q1

REPORT INFORMATION
  Report Type: 
  Country: None (occurrence: None)
  Receive Date: 20110304
  Receipt Date: 20110222
  Transmission Date: 20110831
  Serious: Yes (Other)
  Sender: FDA-Public Use
  Company Number: US-PFIZER INC-2011039107

PATIENT
  Sex: Female

DRUGS (1)
  1. CELEBREX [Suspect]
     Indication: LIMB DISCOMFORT
     Dosage: 200 MG, DAILY
     Dates: start: 20110221

REACTIONS (3)
  - NAUSEA [None]
  - HYPERTENSION [None]
  - DIZZINESS [None]
